FAERS Safety Report 24052287 (Version 1)
Quarter: 2024Q3

REPORT INFORMATION
  Report Type: Spontaneous
  Country: JP (occurrence: JP)
  Receive Date: 20240704
  Receipt Date: 20240704
  Transmission Date: 20241016
  Serious: Yes (Other)
  Sender: ORGANON
  Company Number: JP-ORGANON-O2407JPN000169

PATIENT
  Age: 54 Year
  Sex: Female

DRUGS (1)
  1. SINGULAIR [Suspect]
     Active Substance: MONTELUKAST SODIUM
     Indication: Rhinitis allergic
     Dosage: 10 MILLIGRAM
     Route: 048

REACTIONS (2)
  - Internal haemorrhage [Unknown]
  - Platelet count decreased [Unknown]
